FAERS Safety Report 9856246 (Version 11)
Quarter: 2015Q3

REPORT INFORMATION
  Report Type: Report from Study
  Country: CA (occurrence: CA)
  Receive Date: 20140130
  Receipt Date: 20150902
  Transmission Date: 20151125
  Serious: Yes (Hospitalization, Other)
  Sender: FDA-Public Use
  Company Number: PHHY2013CA005080

PATIENT
  Age: 57 Year
  Sex: Female

DRUGS (5)
  1. SANDOSTATIN LAR DEPOT [Suspect]
     Active Substance: OCTREOTIDE ACETATE
     Indication: CARCINOID SYNDROME
     Dosage: 20 MG, QMO
     Route: 030
     Dates: start: 20021111, end: 20150806
  2. LOPRESSOR [Suspect]
     Active Substance: METOPROLOL TARTRATE
     Indication: PRODUCT USED FOR UNKNOWN INDICATION
     Route: 048
  3. IODINE [Concomitant]
     Active Substance: IODINE
     Indication: PRODUCT USED FOR UNKNOWN INDICATION
     Route: 065
  4. PREVACID [Concomitant]
     Active Substance: LANSOPRAZOLE
     Indication: PRODUCT USED FOR UNKNOWN INDICATION
     Dosage: 30 MG, QD
     Route: 065
  5. CELEBREX [Concomitant]
     Active Substance: CELECOXIB
     Indication: PRODUCT USED FOR UNKNOWN INDICATION
     Dosage: 100 MG, QD
     Route: 065

REACTIONS (21)
  - Chromaturia [Recovered/Resolved]
  - Vomiting [Unknown]
  - Blood pressure systolic increased [Unknown]
  - Bile duct obstruction [Recovering/Resolving]
  - Pneumonia [Unknown]
  - Vitamin B12 deficiency [Unknown]
  - Hepatic vein occlusion [Unknown]
  - Asthenia [Unknown]
  - Malaise [Recovered/Resolved]
  - Jaundice [Unknown]
  - Hepatic fibrosis [Unknown]
  - Pyrexia [Unknown]
  - Liver disorder [Recovering/Resolving]
  - Yellow skin [Unknown]
  - Nausea [Unknown]
  - Bile duct stone [Unknown]
  - Cough [Unknown]
  - Vitamin D deficiency [Unknown]
  - Balance disorder [Unknown]
  - Nasopharyngitis [Unknown]
  - Diarrhoea [Unknown]

NARRATIVE: CASE EVENT DATE: 2014
